FAERS Safety Report 10252374 (Version 2)
Quarter: 2014Q3

REPORT INFORMATION
  Report Type: Spontaneous
  Country: AU (occurrence: None)
  Receive Date: 20140619
  Receipt Date: 20140714
  Transmission Date: 20150326
  Serious: Yes (Other)
  Sender: FDA-Public Use
  Company Number: 2014AP003446

PATIENT
  Sex: Female

DRUGS (4)
  1. IRON (IRON) [Concomitant]
     Active Substance: IRON
  2. DIAZEPAM (DIAZEPAM) [Concomitant]
     Active Substance: DIAZEPAM
  3. AMOXICILLIN/CLAVULANATE [Suspect]
     Active Substance: AMOXICILLIN\CLAVULANATE POTASSIUM
     Indication: PRODUCT USED FOR UNKNOWN INDICATION
     Route: 048
     Dates: start: 20140522, end: 20140525
  4. VITAMIN B COMPLEX [Concomitant]
     Active Substance: CYANOCOBALAMIN\DEXPANTHENOL\NIACINAMIDE\PYRIDOXINE HYDROCHLORIDE\RIBOFLAVIN 5^-PHOSPHATE SODIUM\THIAMINE HYDROCHLORIDE\VITAMIN B COMPLEX

REACTIONS (6)
  - Cerebrovascular accident [None]
  - Fatigue [None]
  - Headache [None]
  - Dizziness [None]
  - Diarrhoea [None]
  - Dysphonia [None]
